FAERS Safety Report 7277324-6 (Version None)
Quarter: 2011Q1

REPORT INFORMATION
  Report Type: 
  Country: None (occurrence: None)
  Receive Date: 20110203
  Receipt Date: 20110203
  Transmission Date: 20110831
  Serious: Yes (Hospitalization)
  Sender: FDA-Public Use
  Company Number: None

PATIENT
  Sex: Female
  Weight: 61.6 kg

DRUGS (8)
  1. ZOMETA [Concomitant]
  2. VITAMIN B-12 [Concomitant]
  3. VITAMIN E [Concomitant]
  4. VORINOSTAT 300 MG DAILY DAYS 1-14 OF EACH CYCLE [Suspect]
     Indication: BREAST CANCER METASTATIC
     Dosage: PO DAYS 1-14 EACH CYCLE
     Route: 048
     Dates: start: 20101019, end: 20110131
  5. VITAMIN D [Concomitant]
  6. CALCIUM [Concomitant]
  7. VI CODIN PRN [Concomitant]
  8. IXABEPILONE 32MG/M2 ONCE EVERY 21 DAYS [Suspect]
     Indication: BREAST CANCER METASTATIC
     Dosage: 52.8 MG
     Dates: start: 20101019, end: 20110121

REACTIONS (3)
  - ANAEMIA [None]
  - LEUKOPENIA [None]
  - PNEUMONIA [None]
